FAERS Safety Report 7380351-1 (Version None)
Quarter: 2011Q1

REPORT INFORMATION
  Report Type: 
  Country: None (occurrence: None)
  Receive Date: 20110329
  Receipt Date: 20091113
  Transmission Date: 20110831
  Serious: Yes (Death, Hospitalization, Other)
  Sender: FDA-Public Use
  Company Number: US-BAYER-200939802NA

PATIENT
  Sex: Female
  Weight: 104 kg

DRUGS (28)
  1. MIDAZOLAM [Concomitant]
     Dosage: 16 MG, UNK
     Route: 042
     Dates: start: 20040901
  2. GLYBURIDE [Concomitant]
     Dosage: 5 MG, UNK
     Route: 048
  3. PIROXICAM [Concomitant]
     Dosage: 20 MG, UNK
     Route: 048
  4. HEPARIN SODIUM [Concomitant]
     Dosage: UNK
     Dates: start: 20040901
  5. MUCOMYST [Concomitant]
     Dosage: UNK
     Dates: start: 20040901
  6. RED BLOOD CELLS [Concomitant]
     Dosage: 2 U, UNK
     Dates: start: 20040904
  7. LISINOPRIL [Concomitant]
     Dosage: 40 MG, UNK
     Route: 048
  8. HUMULIN [INSULIN HUMAN] [Concomitant]
     Route: 058
  9. NITROGLYCERIN [Concomitant]
     Dosage: 10MCG/MIN
     Route: 042
     Dates: start: 20040901
  10. NITROGLYCERIN [Concomitant]
     Dosage: DRIP
     Route: 042
     Dates: start: 20040901
  11. HEPARIN SODIUM [Concomitant]
     Dosage: MULTIPLE DOSES
     Route: 042
     Dates: start: 20040901
  12. PAPAVERINE [Concomitant]
     Dosage: 300 MG, UNK
     Route: 042
     Dates: start: 20040901
  13. ALBUMIN (HUMAN) [Concomitant]
     Dosage: 100 ML, UNK
     Route: 042
     Dates: start: 20040901
  14. TRASYLOL [Suspect]
     Indication: CORONARY ARTERY BYPASS
     Dosage: 400ML, FOLLOWED BY 50ML/HR INFUSION
     Route: 042
     Dates: start: 20040901, end: 20040901
  15. ACETYLSALICYLIC ACID SRT [Concomitant]
     Dosage: (4) 81MG TABS
     Route: 048
     Dates: start: 20040901
  16. CATAPRES [Concomitant]
     Dosage: 0.3 MG, UNK
     Route: 062
  17. ARAVA [Concomitant]
     Dosage: 20 MG, UNK
     Route: 048
  18. LIPITOR [Concomitant]
  19. VANCOMYCIN [Concomitant]
     Dosage: 1 G, UNK
     Route: 042
     Dates: start: 20040901
  20. INSULIN [Concomitant]
     Dosage: DRIP
     Route: 042
     Dates: start: 20040901
  21. NORVASC [Concomitant]
     Dosage: 10 MG, UNK
     Route: 048
  22. PROTAMINE SULFATE [Concomitant]
     Dosage: 550 MG, UNK
     Route: 042
     Dates: start: 20040901
  23. LIDOCAINE [Concomitant]
     Dosage: 100 MG, UNK
     Route: 042
     Dates: start: 20040901
  24. FRESH FROZEN PLASMA [Concomitant]
     Dosage: 2 U, UNK
     Dates: start: 20040904
  25. TRASYLOL [Suspect]
     Indication: AORTIC VALVE REPLACEMENT
     Dosage: 200CC BOLUS, FOLLOWED BY AN INFUSION OF 50ML/HR
     Route: 042
     Dates: start: 20040904
  26. QUINIDINE [Concomitant]
  27. LASIX [Concomitant]
     Dosage: 60 MG, UNK
     Route: 042
     Dates: start: 20040901
  28. PLATELETS [Concomitant]
     Dosage: 413 ML, UNK
     Dates: start: 20040901

REACTIONS (14)
  - DEATH [None]
  - ANHEDONIA [None]
  - CARDIOGENIC SHOCK [None]
  - STRESS [None]
  - FEAR [None]
  - RENAL INJURY [None]
  - CEREBROVASCULAR ACCIDENT [None]
  - UNEVALUABLE EVENT [None]
  - EMOTIONAL DISTRESS [None]
  - RENAL IMPAIRMENT [None]
  - RENAL FAILURE [None]
  - ANXIETY [None]
  - PAIN [None]
  - INJURY [None]
